FAERS Safety Report 5451006-5 (Version None)
Quarter: 2007Q3

REPORT INFORMATION
  Report Type: 
  Country: None (occurrence: None)
  Receive Date: 20070801
  Receipt Date: 20060720
  Transmission Date: 20080115
  Serious: Yes (Hospitalization)
  Sender: FDA-Public Use
  Company Number: T200600787

PATIENT
  Age: 47 Year
  Sex: Female
  Weight: 126.1 kg

DRUGS (1)
  1. TOFRANIL [Suspect]
     Indication: SLEEP DISORDER
     Dosage: 25 MG, 3-4 TABLETS AT NIGHT, QD, ORAL
     Route: 048
     Dates: start: 19910101, end: 20060718

REACTIONS (7)
  - DELUSION [None]
  - DEPRESSION [None]
  - DRUG INEFFECTIVE [None]
  - INSOMNIA [None]
  - POOR QUALITY SLEEP [None]
  - RESTLESSNESS [None]
  - SOMNOLENCE [None]
